FAERS Safety Report 5290374-4 (Version None)
Quarter: 2007Q2

REPORT INFORMATION
  Report Type: 
  Country: None (occurrence: None)
  Receive Date: 20070409
  Receipt Date: 20070329
  Transmission Date: 20071010
  Serious: Yes (Other)
  Sender: FDA-Public Use
  Company Number: US-AVENTIS-200710049US

PATIENT
  Sex: Female
  Weight: 62.73 kg

DRUGS (17)
  1. LOVENOX [Suspect]
     Dates: start: 20060501
  2. LOVENOX [Suspect]
     Dates: start: 20061001
  3. LOVENOX [Suspect]
  4. LOVENOX [Suspect]
     Route: 058
     Dates: start: 20070101
  5. LOVENOX [Suspect]
     Dates: start: 20060501
  6. LOVENOX [Suspect]
     Dates: start: 20061001
  7. LOVENOX [Suspect]
  8. LOVENOX [Suspect]
     Route: 058
     Dates: start: 20070101
  9. LOVENOX [Suspect]
     Dates: start: 20060501
  10. LOVENOX [Suspect]
     Dates: start: 20061001
  11. LOVENOX [Suspect]
  12. LOVENOX [Suspect]
     Route: 058
     Dates: start: 20070101
  13. ASPIRIN [Concomitant]
  14. ASPIRIN [Concomitant]
     Dates: start: 20070101
  15. HEPAGRISEVIT FORTE-N               /01079901/ [Concomitant]
     Route: 048
     Dates: start: 20060401
  16. FIBERCON                           /00567702/ [Concomitant]
     Dosage: DOSE QUANTITY: 2
     Route: 048
     Dates: start: 20021101
  17. IMODIUM                            /00384302/ [Concomitant]
     Dosage: DOSE: 2 (HOLD DURING PREGANANCY)
     Route: 048

REACTIONS (5)
  - ABORTION SPONTANEOUS [None]
  - COAGULATION TEST ABNORMAL [None]
  - CONTUSION [None]
  - DRUG INEFFECTIVE [None]
  - HYPERCOAGULATION [None]
